FAERS Safety Report 8171420-7 (Version None)
Quarter: 2012Q1

REPORT INFORMATION
  Report Type: 
  Country: None (occurrence: None)
  Receive Date: 20120228
  Receipt Date: 20120214
  Transmission Date: 20120608
  Serious: Yes (Hospitalization)
  Sender: FDA-Public Use
  Company Number: NL-MEDIMMUNE-MEDI-0013924

PATIENT
  Sex: Male
  Weight: 7.48 kg

DRUGS (7)
  1. LEVETIRACETAM [Concomitant]
     Indication: EPILEPSY
  2. ESOMEPRAZOLE SODIUM [Concomitant]
     Dates: start: 20110101
  3. FERROUS GLUCONATE [Concomitant]
     Dates: start: 20110101
  4. CORTICOTROPIN [Concomitant]
     Dates: start: 20120103
  5. SYNAGIS [Suspect]
     Indication: PREMATURE BABY
     Route: 030
     Dates: start: 20110914, end: 20111010
  6. FOLIC ACID [Concomitant]
     Dates: start: 20110101
  7. SYNAGIS [Suspect]
     Route: 030
     Dates: start: 20111109, end: 20120214

REACTIONS (7)
  - INFANTILE SPASMS [None]
  - HYPOPHAGIA [None]
  - NASOPHARYNGITIS [None]
  - PYREXIA [None]
  - MUSCLE SPASMS [None]
  - EPILEPSY [None]
  - RESPIRATORY TRACT INFECTION [None]
